FAERS Safety Report 5503035-0 (Version None)
Quarter: 2007Q4

REPORT INFORMATION
  Report Type: 
  Country: None (occurrence: None)
  Receive Date: 20071031
  Receipt Date: 20071023
  Transmission Date: 20080405
  Serious: Yes (Hospitalization)
  Sender: FDA-Public Use
  Company Number: DE-PURDUE-DEU_2007_0003697

PATIENT
  Age: 68 Year
  Sex: Male

DRUGS (14)
  1. OXYCODONE HCL/NALOXONE HCL CR TAB20/10MG [Suspect]
     Indication: PAIN
     Dosage: 20 MG, BID
     Route: 048
     Dates: start: 20070430
  2. SIMVAHEXAL [Concomitant]
  3. MOLSIDOMINE [Concomitant]
  4. TORSEMIDE [Concomitant]
  5. PLAVIX [Concomitant]
  6. LEVOTHYROXINE SODIUM [Concomitant]
  7. ALLOPURINOL [Concomitant]
  8. SPIRO-CT [Concomitant]
  9. PHENYTOIN [Concomitant]
  10. TRANXILIUM [Concomitant]
  11. THEOPHYLLINE [Concomitant]
     Indication: DYSPNOEA
     Route: 048
     Dates: start: 20070612
  12. BISOHEXAL [Concomitant]
  13. ZOP [Concomitant]
  14. ISCOVER [Suspect]

REACTIONS (1)
  - CEREBROVASCULAR ACCIDENT [None]
